FAERS Safety Report 16903928 (Version 1)
Quarter: 2019Q4

REPORT INFORMATION
  Report Type: Spontaneous
  Country: US (occurrence: US)
  Receive Date: 20191010
  Receipt Date: 20191010
  Transmission Date: 20200122
  Serious: No
  Sender: FDA-Public Use
  Company Number: US-BAYER-2019-177344

PATIENT

DRUGS (3)
  1. CLARITIN [Suspect]
     Active Substance: LORATADINE
     Indication: DUST ALLERGY
  2. CLARITIN [Concomitant]
     Active Substance: LORATADINE
     Indication: DUST ALLERGY
  3. CLARITIN LIQUI-GELS [Suspect]
     Active Substance: LORATADINE
     Indication: DUST ALLERGY

REACTIONS (1)
  - Therapeutic product effect incomplete [Unknown]
